FAERS Safety Report 17794807 (Version 1)
Quarter: 2020Q2

REPORT INFORMATION
  Report Type: Spontaneous
  Country: IL (occurrence: IL)
  Receive Date: 20200515
  Receipt Date: 20200515
  Transmission Date: 20200714
  Serious: Yes (Other)
  Sender: FDA-Public Use
  Company Number: IL-ASTRAZENECA-2020SE61593

PATIENT
  Age: 44 Year
  Sex: Female

DRUGS (5)
  1. FASLODEX [Suspect]
     Active Substance: FULVESTRANT
     Indication: BREAST CANCER FEMALE
     Dosage: AN UNKNOWN DOSE AND FREQUENCY
     Route: 030
     Dates: start: 201709, end: 201804
  2. LYNPARZA [Suspect]
     Active Substance: OLAPARIB
     Indication: BREAST CANCER FEMALE
     Dosage: AN UNKNOWN DOSE AND FREQUENCY
     Route: 048
     Dates: start: 201804
  3. IBRANCE [Suspect]
     Active Substance: PALBOCICLIB
     Indication: BREAST CANCER FEMALE
     Dosage: AN UNKNOWN DOSE AND FREQUENCY
     Route: 048
     Dates: start: 201709, end: 201804
  4. LETROZOLE. [Concomitant]
     Active Substance: LETROZOLE
     Indication: BREAST CANCER FEMALE
     Dosage: AN UNKNOWN DOSE AND FREQUENCY
     Route: 065
     Dates: start: 201612, end: 201708
  5. IBRANCE [Suspect]
     Active Substance: PALBOCICLIB
     Indication: BREAST CANCER FEMALE
     Dosage: AN UNKNOWN DOSE AND FREQUENCY
     Route: 048
     Dates: start: 201612, end: 201708

REACTIONS (1)
  - Malignant neoplasm progression [Unknown]
